FAERS Safety Report 16294102 (Version 2)
Quarter: 2020Q2

REPORT INFORMATION
  Report Type: Spontaneous
  Country: US (occurrence: US)
  Receive Date: 20190509
  Receipt Date: 20200505
  Transmission Date: 20200713
  Serious: No
  Sender: FDA-Public Use
  Company Number: US-ROCHE-2142825

PATIENT
  Age: 82 Year
  Sex: Male

DRUGS (9)
  1. ATORVASTATIN CALCIUM. [Concomitant]
     Active Substance: ATORVASTATIN CALCIUM
     Indication: PRODUCT USED FOR UNKNOWN INDICATION
     Dosage: ONE TABLET IN THE MORNING
     Route: 048
     Dates: start: 20080912
  2. COLESEVELAM [Concomitant]
     Active Substance: COLESEVELAM
     Route: 048
     Dates: start: 20171116
  3. ELIQUIS [Concomitant]
     Active Substance: APIXABAN
     Route: 048
     Dates: start: 20170105
  4. ESBRIET [Suspect]
     Active Substance: PIRFENIDONE
     Indication: IDIOPATHIC PULMONARY FIBROSIS
     Dosage: ONGOING : NO
     Route: 048
     Dates: start: 20180413
  5. PANTOPRAZOLE SODIUM. [Concomitant]
     Active Substance: PANTOPRAZOLE SODIUM
     Route: 048
     Dates: start: 20110222
  6. FUROSEMIDE. [Concomitant]
     Active Substance: FUROSEMIDE
     Route: 048
     Dates: start: 20160503
  7. PREDNISONE. [Concomitant]
     Active Substance: PREDNISONE
     Dosage: ONE TABLET VERY OTHER DAY
     Route: 048
     Dates: start: 20110222
  8. AZELASTINE HCL [Concomitant]
     Active Substance: AZELASTINE HYDROCHLORIDE
     Dosage: INSERT 1 SQUIRTS IN EACH NOSTRIL
     Route: 045
     Dates: start: 20180625
  9. TRAMADOL HCL [Concomitant]
     Active Substance: TRAMADOL HYDROCHLORIDE
     Route: 048
     Dates: start: 20170926

REACTIONS (4)
  - Drug hypersensitivity [Unknown]
  - Malaise [Recovered/Resolved]
  - Sunburn [Unknown]
  - Skin disorder [Unknown]

NARRATIVE: CASE EVENT DATE: 20180601
